FAERS Safety Report 8217011 (Version 3)
Quarter: 2012Q4

REPORT INFORMATION
  Report Type: Report from Study
  Country: DE (occurrence: DE)
  Receive Date: 20111101
  Receipt Date: 20121204
  Transmission Date: 20130627
  Serious: Yes (Hospitalization)
  Sender: FDA-Public Use
  Company Number: DE-UCBSA-044213

PATIENT
  Age: 33 Year
  Sex: Female
  Weight: 80 kg

DRUGS (11)
  1. CERTOLIZUMAB PEGOL [Suspect]
     Indication: RHEUMATOID ARTHRITIS
     Dosage: NO. OF DOSES RECEIVED: 14
     Route: 058
     Dates: start: 20110107
  2. IBUPROFEN [Concomitant]
     Indication: RHEUMATOID ARTHRITIS
     Route: 048
  3. ARAVA [Concomitant]
     Indication: RHEUMATOID ARTHRITIS
     Dosage: 1-0-0
     Route: 048
     Dates: start: 201004
  4. DECORTIN [Concomitant]
     Indication: RHEUMATOID ARTHRITIS
     Route: 048
     Dates: start: 20101208, end: 20110107
  5. DECORTIN [Concomitant]
     Indication: RHEUMATOID ARTHRITIS
     Route: 048
     Dates: start: 20110108, end: 20110406
  6. DECORTIN [Concomitant]
     Indication: RHEUMATOID ARTHRITIS
     Dosage: 7, 5/10 MG
     Route: 048
     Dates: start: 20110407, end: 20111011
  7. DECORTIN [Concomitant]
     Indication: RHEUMATOID ARTHRITIS
     Dosage: 5/10 MG
     Route: 048
     Dates: start: 20111012, end: 20120109
  8. DECORTIN [Concomitant]
     Indication: RHEUMATOID ARTHRITIS
     Route: 048
     Dates: start: 20120109
  9. PANTOZOL [Concomitant]
     Indication: PROPHYLAXIS AGAINST GASTROINTESTINAL ULCER
     Route: 048
     Dates: start: 20100808
  10. PANTOZOL [Concomitant]
     Indication: PROPHYLAXIS AGAINST GASTROINTESTINAL ULCER
     Dosage: 40; 1-0-1
  11. CALCIGEN D [Concomitant]
     Dosage: 1-0-1

REACTIONS (1)
  - Melaena [Recovered/Resolved]
